FAERS Safety Report 14260442 (Version 7)
Quarter: 2018Q4

REPORT INFORMATION
  Report Type: Report from Study
  Country: US (occurrence: US)
  Receive Date: 20171207
  Receipt Date: 20181102
  Transmission Date: 20190204
  Serious: Yes (Death, Hospitalization, Other)
  Sender: FDA-Public Use
  Company Number: US-ACTELION-A-NJ2017-163762

PATIENT
  Age: 87 Year
  Sex: Female
  Weight: 65.31 kg

DRUGS (4)
  1. UPTRAVI [Suspect]
     Active Substance: SELEXIPAG
     Indication: PULMONARY HYPERTENSION
     Dosage: 400 MCG, BID
     Route: 048
     Dates: end: 20181005
  2. TRACLEER [Suspect]
     Active Substance: BOSENTAN
     Indication: PULMONARY HYPERTENSION
     Dosage: 125 MG, BID
     Route: 048
     Dates: end: 20181005
  3. ADCIRCA [Concomitant]
     Active Substance: TADALAFIL
  4. PREDNISONE. [Concomitant]
     Active Substance: PREDNISONE
     Indication: INTERSTITIAL LUNG DISEASE
     Dosage: 10 MG, QD

REACTIONS (19)
  - Pulmonary mass [Fatal]
  - Pneumonia [Unknown]
  - Transcatheter aortic valve implantation [Unknown]
  - Anal squamous cell carcinoma [Not Recovered/Not Resolved]
  - Hospice care [Unknown]
  - Fluid overload [Unknown]
  - Concomitant disease progression [Not Recovered/Not Resolved]
  - Invasive ductal breast carcinoma [Not Recovered/Not Resolved]
  - Axillary mass [Unknown]
  - Vascular calcification [Unknown]
  - Metastases to lymph nodes [Fatal]
  - Malignant anorectal neoplasm [Not Recovered/Not Resolved]
  - Asthenia [Unknown]
  - Breast mass [Unknown]
  - Metastases to liver [Fatal]
  - Fatigue [Unknown]
  - Pain [Unknown]
  - Triple negative breast cancer [Not Recovered/Not Resolved]
  - Aortic stenosis [Unknown]

NARRATIVE: CASE EVENT DATE: 2014
